FAERS Safety Report 8506907-8 (Version None)
Quarter: 2012Q3

REPORT INFORMATION
  Report Type: 
  Country: None (occurrence: None)
  Receive Date: 20120712
  Receipt Date: 20120705
  Transmission Date: 20120928
  Serious: Yes (Hospitalization, Other)
  Sender: FDA-Public Use
  Company Number: US-PFIZER INC-2012160084

PATIENT
  Sex: Female
  Weight: 52.15 kg

DRUGS (2)
  1. DILANTIN-125 [Suspect]
     Indication: CONVULSION
     Dosage: UNK
  2. DEPAKOTE [Concomitant]
     Indication: CONVULSION
     Dosage: UNK

REACTIONS (3)
  - STEVENS-JOHNSON SYNDROME [None]
  - SCAR [None]
  - RASH [None]
